FAERS Safety Report 9686067 (Version 1)
Quarter: 2013Q4

REPORT INFORMATION
  Report Type: Spontaneous
  Country: US (occurrence: US)
  Receive Date: 20131113
  Receipt Date: 20131113
  Transmission Date: 20140711
  Serious: No
  Sender: FDA-Public Use
  Company Number: US-ALLERGAN-1215409US

PATIENT
  Age: 68 Year
  Sex: Female

DRUGS (4)
  1. COMBIGAN[R] [Suspect]
     Indication: PRODUCT USED FOR UNKNOWN INDICATION
     Dosage: UNK
     Route: 047
     Dates: start: 20121105, end: 20121105
  2. LUMIGAN [Concomitant]
     Indication: PRODUCT USED FOR UNKNOWN INDICATION
     Route: 047
  3. ALPHAGAN P [Concomitant]
     Indication: PRODUCT USED FOR UNKNOWN INDICATION
     Route: 047
  4. DAILY VITAMINS [Concomitant]
     Indication: SUPPLEMENTATION THERAPY

REACTIONS (1)
  - Eye irritation [Recovered/Resolved]
